FAERS Safety Report 5326929-8 (Version None)
Quarter: 2007Q2

REPORT INFORMATION
  Report Type: 
  Country: None (occurrence: None)
  Receive Date: 20070504
  Receipt Date: 20070423
  Transmission Date: 20071010
  Serious: Yes (Other)
  Sender: FDA-Public Use
  Company Number: B0468661A

PATIENT
  Age: 47 Year
  Sex: Male

DRUGS (3)
  1. ABACAVIR SULFATE [Suspect]
     Indication: SYSTEMIC ANTIVIRAL TREATMENT
  2. NEVIRAPINE [Suspect]
     Indication: SYSTEMIC ANTIVIRAL TREATMENT
     Dosage: 200 MG / TWICE PER DAY / UNKNOWN
  3. TENOFOVIR DISOPROXIL FUMARATE [Suspect]
     Indication: SYSTEMIC ANTIVIRAL TREATMENT

REACTIONS (2)
  - CHROMATURIA [None]
  - HEPATITIS B [None]
